FAERS Safety Report 9657926 (Version 4)
Quarter: 2014Q2

REPORT INFORMATION
  Report Type: Spontaneous
  Country: US (occurrence: US)
  Receive Date: 20131030
  Receipt Date: 20140430
  Transmission Date: 20141212
  Serious: No
  Sender: FDA-Public Use
  Company Number: US-009507513-1310USA002949

PATIENT
  Sex: Male

DRUGS (4)
  1. PEGINTRON [Suspect]
     Indication: HEPATITIS C
     Dosage: REDIPEN, FOR A YEAR AND A HALF
     Dates: start: 20060101, end: 20070601
  2. PEGINTRON [Suspect]
     Dosage: REDIPEN, Q7DAYS
     Route: 058
     Dates: start: 20070101, end: 20080103
  3. REBETOL [Suspect]
     Indication: HEPATITIS C
     Dosage: FOR A YEAR AND A HALF
     Route: 048
     Dates: start: 20060101, end: 20070601
  4. REBETOL [Suspect]
     Dosage: UNK, B.I.D. (TWICE A DAY)
     Route: 048
     Dates: start: 20070101, end: 20080103

REACTIONS (4)
  - Mood altered [Unknown]
  - Disturbance in attention [Unknown]
  - Diarrhoea [Unknown]
  - Alopecia [Unknown]
